FAERS Safety Report 25674297 (Version 2)
Quarter: 2025Q4

REPORT INFORMATION
  Report Type: Spontaneous
  Country: CA (occurrence: CA)
  Receive Date: 20250813
  Receipt Date: 20251011
  Transmission Date: 20260118
  Serious: Yes (Other)
  Sender: CELLTRION
  Company Number: CA-PFIZER INC-202500158970

PATIENT

DRUGS (5)
  1. INFLECTRA [Suspect]
     Active Substance: INFLIXIMAB-DYYB
     Indication: Neurosarcoidosis
     Dosage: 1 DF, EVERY 6 WEEKS, 7.5 MG/KG AS PER WEIGHT DAY OF INFUSION.
     Dates: start: 20250624
  2. INFLECTRA [Suspect]
     Active Substance: INFLIXIMAB-DYYB
     Dosage: 630 MG, 1DF, EVERY 6 WEEKS, 7.5 MG/KG AS PER WEIGHT DAY OF INFUSION.
     Dates: start: 20250805
  3. PREDNISONE [Concomitant]
     Active Substance: PREDNISONE
     Dosage: 50 MG
  4. PREDNISONE [Concomitant]
     Active Substance: PREDNISONE
     Dosage: 15 MG, 1X/DAY (1 DF, STARTED AT 50MG NOW DOWN TO 15MG OD)
  5. METHOTREXATE [Concomitant]
     Active Substance: METHOTREXATE
     Dosage: 1 DF

REACTIONS (2)
  - Ankle fracture [Not Recovered/Not Resolved]
  - Fall [Unknown]
